FAERS Safety Report 18640356 (Version 7)
Quarter: 2025Q4

REPORT INFORMATION
  Report Type: Spontaneous
  Country: AU (occurrence: AU)
  Receive Date: 20201221
  Receipt Date: 20251110
  Transmission Date: 20260118
  Serious: Yes (Hospitalization)
  Sender: CELLTRION
  Company Number: AU-CELLTRION INC.-2020AU034146

PATIENT

DRUGS (15)
  1. INFLECTRA [Suspect]
     Active Substance: INFLIXIMAB-DYYB
     Indication: Crohn^s disease
     Dosage: 10 MG/KG, 4 WEEKLY
  2. INFLECTRA [Suspect]
     Active Substance: INFLIXIMAB-DYYB
     Dosage: 10 MG/KG EVERY 4 WEEKS FOR 24 MONTHS
  3. INFLECTRA [Suspect]
     Active Substance: INFLIXIMAB-DYYB
     Dosage: 600 MG, 4 WEEKLY
  4. TACROLIMUS [Concomitant]
     Active Substance: TACROLIMUS
     Dosage: UNK
     Route: 061
  5. ALBUMIN HUMAN [Concomitant]
     Active Substance: ALBUMIN HUMAN
     Dosage: UNK
     Route: 042
  6. PIMECROLIMUS [Concomitant]
     Active Substance: PIMECROLIMUS
     Indication: Perineal erythema
     Dosage: UNK
     Route: 061
  7. PIMECROLIMUS [Concomitant]
     Active Substance: PIMECROLIMUS
     Indication: Genital swelling
  8. PIMECROLIMUS [Concomitant]
     Active Substance: PIMECROLIMUS
     Indication: Anal erythema
  9. PIMECROLIMUS [Concomitant]
     Active Substance: PIMECROLIMUS
     Indication: Anorectal swelling
  10. FLAGYL [Concomitant]
     Active Substance: METRONIDAZOLE\METRONIDAZOLE HYDROCHLORIDE
     Dosage: UNK
  11. FOLATE SODIUM [Concomitant]
     Active Substance: FOLATE SODIUM
     Indication: Malabsorption
     Dosage: HIGH DOSE
  12. VIT D [VITAMIN D NOS] [Concomitant]
     Dosage: UNK
  13. ZINC [Concomitant]
     Active Substance: ZINC
     Dosage: UNK
  14. VITAMIN C [Concomitant]
     Active Substance: ASCORBIC ACID
     Dosage: UNK
  15. HYDRALYTE [POTASSIUM CHLORIDE;SODIUM CHLORIDE;SODIUM CITRATE] [Concomitant]
     Dosage: OCCASIONALLY

REACTIONS (3)
  - Condition aggravated [Unknown]
  - Therapeutic product effect decreased [Unknown]
  - Off label use [Unknown]
